FAERS Safety Report 5761819-8 (Version None)
Quarter: 2008Q2

REPORT INFORMATION
  Report Type: 
  Country: None (occurrence: None)
  Receive Date: 20080603
  Receipt Date: 20080527
  Transmission Date: 20081010
  Serious: Yes (Other)
  Sender: FDA-Public Use
  Company Number: 163-20785-07121509

PATIENT
  Age: 68 Year
  Sex: Female

DRUGS (2)
  1. THALOMID [Suspect]
     Indication: MULTIPLE MYELOMA
     Dosage: 100 MG, 1 IN 1 D, ORAL
     Route: 048
     Dates: start: 20060615, end: 20071201
  2. REVLIMID [Suspect]
     Indication: MULTIPLE MYELOMA
     Dosage: 5 MG, ORAL
     Route: 048

REACTIONS (3)
  - NEUROPATHY PERIPHERAL [None]
  - PARAESTHESIA [None]
  - RENAL FAILURE [None]
